FAERS Safety Report 8543988 (Version 3)
Quarter: 2012Q4

REPORT INFORMATION
  Report Type: 
  Country: US (occurrence: US)
  Receive Date: 20120503
  Receipt Date: 20121005
  Transmission Date: 20130627
  Serious: Yes (Other)
  Sender: FDA-Public Use
  Company Number: US-PFIZER INC-2012106417

PATIENT
  Age: 66 Year
  Sex: Male
  Weight: 95 kg

DRUGS (15)
  1. INLYTA [Suspect]
     Indication: RENAL CANCER
     Dosage: 5 mg, 2x/day
     Route: 048
     Dates: start: 20120321, end: 201204
  2. INLYTA [Suspect]
     Dosage: 5 mg, 1x/day
     Route: 048
     Dates: start: 201204, end: 201204
  3. INLYTA [Suspect]
     Dosage: 5 mg, 2x/day
     Route: 048
     Dates: start: 20120426
  4. INLYTA [Suspect]
     Dosage: 6 mg, 1x/day
  5. INLYTA [Suspect]
     Dosage: 3 mg, 2x/day
  6. VITAMIN C [Concomitant]
     Indication: LEUKAEMIA
     Dosage: UNK, 2x/day
     Route: 048
  7. IRON [Concomitant]
     Dosage: UNK, 2x/day
  8. TAMSULOSIN [Concomitant]
     Indication: PROSTATOMEGALY
     Dosage: UNK, 2x/day
     Route: 048
  9. CELEBREX [Concomitant]
     Dosage: 200 mg, 1x/day
  10. SINGULAIR [Concomitant]
     Indication: SINUS DISORDER
     Dosage: 10 mg, UNK
     Route: 048
  11. LORTAB [Concomitant]
     Dosage: 7.5/500 mg, 3x/day
  12. PREDNISONE [Concomitant]
     Dosage: 30 mg, 3x/day
  13. AZELASTINE [Concomitant]
     Dosage: UNK, 2x/day
     Route: 045
  14. ADVAIR [Concomitant]
     Dosage: 250/50 mg, 2x/day
  15. ALBUTEROL [Concomitant]
     Indication: DYSPNOEA
     Dosage: UNK

REACTIONS (7)
  - Pneumonia [Recovering/Resolving]
  - Dyspnoea [Recovering/Resolving]
  - Oral fungal infection [Not Recovered/Not Resolved]
  - Food intolerance [Not Recovered/Not Resolved]
  - Diarrhoea [Not Recovered/Not Resolved]
  - Flatulence [Not Recovered/Not Resolved]
  - Oral disorder [Unknown]
